FAERS Safety Report 18855850 (Version 2)
Quarter: 2021Q1

REPORT INFORMATION
  Report Type: Spontaneous
  Country: HK (occurrence: HK)
  Receive Date: 20210205
  Receipt Date: 20210209
  Transmission Date: 20210420
  Serious: Yes (Other)
  Sender: FDA-Public Use
  Company Number: HK-ROCHE-2760318

PATIENT
  Sex: Female

DRUGS (18)
  1. FOLINIC ACID [Suspect]
     Active Substance: LEUCOVORIN
     Indication: PRODUCT USED FOR UNKNOWN INDICATION
     Route: 065
     Dates: start: 201111
  2. OXALIPLATIN. [Suspect]
     Active Substance: OXALIPLATIN
     Indication: PRODUCT USED FOR UNKNOWN INDICATION
     Route: 065
     Dates: start: 201111
  3. GEMCITABINE. [Suspect]
     Active Substance: GEMCITABINE
     Indication: PRODUCT USED FOR UNKNOWN INDICATION
     Route: 065
     Dates: start: 200403
  4. NEURONTIN [Concomitant]
     Active Substance: GABAPENTIN
  5. ACERTIL [Concomitant]
     Active Substance: PERINDOPRIL
  6. STILNOX [Concomitant]
     Active Substance: ZOLPIDEM TARTRATE
  7. CALTRATE WITH VITAMIN D [Concomitant]
     Active Substance: CALCIUM CARBONATE\CHOLECALCIFEROL
  8. XARELTO [Concomitant]
     Active Substance: RIVAROXABAN
  9. CONCOR [Concomitant]
     Active Substance: BISOPROLOL FUMARATE
  10. HERCEPTIN [Suspect]
     Active Substance: TRASTUZUMAB
     Indication: BREAST CANCER
     Route: 041
  11. LETROZOLE. [Suspect]
     Active Substance: LETROZOLE
     Indication: PRODUCT USED FOR UNKNOWN INDICATION
     Route: 065
     Dates: start: 201603
  12. ATIVAN [Concomitant]
     Active Substance: LORAZEPAM
  13. FLUOROURACIL. [Suspect]
     Active Substance: FLUOROURACIL
     Indication: PRODUCT USED FOR UNKNOWN INDICATION
     Route: 065
     Dates: start: 201111
  14. IMODIUM [Concomitant]
     Active Substance: LOPERAMIDE HYDROCHLORIDE
  15. ARIMIDEX [Concomitant]
     Active Substance: ANASTROZOLE
  16. HERCEPTIN [Suspect]
     Active Substance: TRASTUZUMAB
     Indication: COLON CANCER
     Route: 041
  17. DENOSUMAB [Concomitant]
     Active Substance: DENOSUMAB
     Route: 058
  18. ZOCOR [Concomitant]
     Active Substance: SIMVASTATIN

REACTIONS (14)
  - Left ventricular dysfunction [Unknown]
  - Hyperlipidaemia [Unknown]
  - Metastases to liver [Unknown]
  - Myocardial ischaemia [Unknown]
  - Metastases to bone [Unknown]
  - Coronary artery occlusion [Unknown]
  - Hypertension [Unknown]
  - Strangulated hernia [Unknown]
  - Intestinal obstruction [Unknown]
  - Peritonitis [Unknown]
  - Weight increased [Unknown]
  - Blood creatinine increased [Unknown]
  - Off label use [Unknown]
  - Carotid artery stenosis [Unknown]
